FAERS Safety Report 17968982 (Version 1)
Quarter: 2020Q3

REPORT INFORMATION
  Report Type: Spontaneous
  Country: US (occurrence: US)
  Receive Date: 20200701
  Receipt Date: 20200701
  Transmission Date: 20201103
  Serious: No
  Sender: FDA-Public Use
  Company Number: US-PFM-2019-08843

PATIENT
  Age: 1 Year
  Sex: Female

DRUGS (2)
  1. HEMANGEOL [Suspect]
     Active Substance: PROPRANOLOL HYDROCHLORIDE
     Dosage: 3.2 ML, BID (2/DAY)
     Route: 048
  2. HEMANGEOL [Suspect]
     Active Substance: PROPRANOLOL HYDROCHLORIDE
     Indication: INFANTILE HAEMANGIOMA
     Dosage: 11.984 MG, BID (2/DAY)
     Route: 048

REACTIONS (5)
  - Off label use [Unknown]
  - Upper respiratory tract infection [Unknown]
  - Poor feeding infant [Unknown]
  - Pyrexia [Unknown]
  - Product use issue [Unknown]
